FAERS Safety Report 19502253 (Version 1)
Quarter: 2021Q3

REPORT INFORMATION
  Report Type: Other
  Country: US (occurrence: US)
  Receive Date: 20210707
  Receipt Date: 20210707
  Transmission Date: 20211014
  Serious: Yes (Hospitalization)
  Sender: FDA-Public Use
  Company Number: US-ROCHE-2862460

PATIENT
  Age: 9 Year
  Sex: Female
  Weight: 31.7 kg

DRUGS (6)
  1. ABATACEPT [Suspect]
     Active Substance: ABATACEPT
     Indication: JUVENILE IDIOPATHIC ARTHRITIS
     Dosage: ON 27/MAY/2021, SHE RECEIVED THE MOST RECENT DOSE OF ABATACEPT
     Route: 065
     Dates: start: 20210211
  2. METHOTREXATE. [Suspect]
     Active Substance: METHOTREXATE
     Indication: JUVENILE IDIOPATHIC ARTHRITIS
     Dosage: ON 25/MAY/2021, SHE RECEIVED THE MOST RECENT DOSE OF METHOTREXATE
     Route: 065
     Dates: start: 20190703
  3. FOLIC ACID. [Suspect]
     Active Substance: FOLIC ACID
     Indication: PRODUCT USED FOR UNKNOWN INDICATION
     Route: 065
     Dates: start: 20200423
  4. TOCILIZUMAB. [Suspect]
     Active Substance: TOCILIZUMAB
     Indication: JUVENILE IDIOPATHIC ARTHRITIS
     Dosage: ON 18/MAY/2021, HE RECEIVED THE MOST RECENT DOSE OF TOCILIZUMAB.
     Route: 058
     Dates: start: 20200205
  5. CREON [Concomitant]
     Active Substance: PANCRELIPASE AMYLASE\PANCRELIPASE LIPASE\PANCRELIPASE PROTEASE
     Dosage: DOSE: 2 CAPSULES
     Dates: start: 20210510
  6. PROAIR HFA [Concomitant]
     Active Substance: ALBUTEROL SULFATE
     Indication: ASTHMA
     Dosage: 4 PUFFS/Q4H
     Dates: start: 20210510

REACTIONS (1)
  - Cystic fibrosis [Recovered/Resolved]

NARRATIVE: CASE EVENT DATE: 20210601
